FAERS Safety Report 7339952-9 (Version None)
Quarter: 2011Q1

REPORT INFORMATION
  Report Type: 
  Country: None (occurrence: None)
  Receive Date: 20110228
  Receipt Date: 20110215
  Transmission Date: 20110831
  Serious: Yes (Other)
  Sender: FDA-Public Use
  Company Number: 1000018923

PATIENT
  Age: 91 Year
  Sex: Female

DRUGS (3)
  1. SINTROM (ACENOCOUMAROL) (TABLETS) (ACENOCOUMAROL) [Concomitant]
  2. MEMANTINE [Suspect]
     Indication: DEMENTIA
     Dosage: 5 MG (5 MG,1 IN 1 D),ORAL
     Route: 048
  3. ANTIHYPERTENSIVES (ANTIHYPERTENSIVES) (ANTIHYPERTENSIVES) [Concomitant]

REACTIONS (1)
  - SICK SINUS SYNDROME [None]
